FAERS Safety Report 23651856 (Version 1)
Quarter: 2024Q1

REPORT INFORMATION
  Report Type: Spontaneous
  Country: CN (occurrence: CN)
  Receive Date: 20240320
  Receipt Date: 20240320
  Transmission Date: 20240410
  Serious: Yes (Life-Threatening, Hospitalization, Other)
  Sender: FDA-Public Use
  Company Number: CN-SUN PHARMACEUTICAL INDUSTRIES LTD-2024R1-437011

PATIENT
  Age: 32 Year
  Sex: Female

DRUGS (7)
  1. ARIPIPRAZOLE [Suspect]
     Active Substance: ARIPIPRAZOLE
     Indication: Schizophrenia
     Dosage: 20 MILLIGRAM
     Route: 065
  2. CLOZAPINE [Suspect]
     Active Substance: CLOZAPINE
     Indication: Schizophrenia
     Dosage: DOSE OF 5 G (200X25 MG
     Route: 048
  3. CLOZAPINE [Suspect]
     Active Substance: CLOZAPINE
     Dosage: 100 MILLIGRAM, DAILY
     Route: 065
  4. CLOZAPINE [Suspect]
     Active Substance: CLOZAPINE
     Dosage: 50 MILLIGRAM, DAILY
     Route: 065
  5. NOREPINEPHRINE [Suspect]
     Active Substance: NOREPINEPHRINE\NOREPINEPHRINE BITARTRATE
     Indication: Blood pressure measurement
     Dosage: UNK
     Route: 065
  6. TERLIPRESSIN [Suspect]
     Active Substance: TERLIPRESSIN
     Indication: Blood pressure measurement
     Dosage: UNK
     Route: 065
  7. ESMOLOL [Suspect]
     Active Substance: ESMOLOL HYDROCHLORIDE
     Indication: Blood pressure measurement
     Dosage: UNK
     Route: 065

REACTIONS (11)
  - Cardiac output [Unknown]
  - Coma [Unknown]
  - Exposure during pregnancy [Unknown]
  - Haemodynamic instability [Unknown]
  - Hypotension [Unknown]
  - Metabolic acidosis [Unknown]
  - Overdose [Unknown]
  - Tachycardia [Unknown]
  - Toxicity to various agents [Unknown]
  - Respiratory rate [Unknown]
  - Venous oxygen saturation abnormal [Unknown]
